FAERS Safety Report 11625236 (Version 1)
Quarter: 2015Q4

REPORT INFORMATION
  Report Type: Spontaneous
  Country: US (occurrence: US)
  Receive Date: 20151013
  Receipt Date: 20151013
  Transmission Date: 20160304
  Serious: No
  Sender: FDA-Public Use
  Company Number: US-ENDO PHARMACEUTICALS INC.-2015-002726

PATIENT
  Age: 75 Year
  Sex: Male

DRUGS (3)
  1. NORCO [Concomitant]
     Active Substance: ACETAMINOPHEN\HYDROCODONE BITARTRATE
     Indication: PAIN
  2. VALSTAR [Suspect]
     Active Substance: VALRUBICIN
     Indication: BLADDER TRANSITIONAL CELL CARCINOMA
     Route: 043
     Dates: start: 20150825
  3. VALSTAR [Suspect]
     Active Substance: VALRUBICIN
     Route: 043
     Dates: start: 20150109

REACTIONS (5)
  - Urge incontinence [Recovered/Resolved]
  - Bladder spasm [Recovered/Resolved]
  - Drug administration error [Recovered/Resolved]
  - Bladder instillation procedure [Recovered/Resolved]
  - Underdose [Recovered/Resolved]

NARRATIVE: CASE EVENT DATE: 20150825
